FAERS Safety Report 8784756 (Version 1)
Quarter: 2012Q4

REPORT INFORMATION
  Report Type: 
  Country: IN (occurrence: US)
  Receive Date: 20120914
  Receipt Date: 20120914
  Transmission Date: 20130627
  Serious: No
  Sender: FDA-Public Use
  Company Number: US-BAYER-2012-093854

PATIENT
  Sex: Female

DRUGS (2)
  1. ESTRADIOL [Suspect]
     Dosage: 0.075 mg, QD
     Route: 062
     Dates: start: 20120818
  2. THYROID PILL [Concomitant]
     Dosage: 60 mg, UNK
     Route: 048

REACTIONS (4)
  - Hot flush [Not Recovered/Not Resolved]
  - Insomnia [Not Recovered/Not Resolved]
  - Hyperhidrosis [Not Recovered/Not Resolved]
  - Breast pain [Not Recovered/Not Resolved]
